FAERS Safety Report 18696188 (Version 1)
Quarter: 2021Q1

REPORT INFORMATION
  Report Type: Spontaneous
  Country: BE (occurrence: BE)
  Receive Date: 20210104
  Receipt Date: 20210104
  Transmission Date: 20210419
  Serious: Yes (Other)
  Sender: FDA-Public Use
  Company Number: PHHY2016BE186663

PATIENT
  Age: 72 Year
  Sex: Male
  Weight: 80.7 kg

DRUGS (19)
  1. IRINOTECAN [Suspect]
     Active Substance: IRINOTECAN
     Dosage: UNK, BIW
     Route: 042
     Dates: start: 20160719
  2. AVASTIN [Suspect]
     Active Substance: BEVACIZUMAB
     Dosage: UNK, BIW
     Route: 042
     Dates: start: 20160719, end: 20160830
  3. AVASTIN [Suspect]
     Active Substance: BEVACIZUMAB
     Dosage: 1 DF, QW2
     Route: 042
     Dates: start: 20160719, end: 20160830
  4. IRINOTECAN [Suspect]
     Active Substance: IRINOTECAN
     Indication: COLORECTAL CANCER METASTATIC
     Dosage: UNK DF, QW2
     Route: 042
     Dates: start: 20160719
  5. FOLINIC ACID [Suspect]
     Active Substance: LEUCOVORIN
     Indication: COLORECTAL CANCER METASTATIC
     Dosage: 1 OT, QW2 (38 CYCLES)
     Route: 042
     Dates: start: 20140618, end: 20160705
  6. AVASTIN [Suspect]
     Active Substance: BEVACIZUMAB
     Indication: COLORECTAL CANCER METASTATIC
     Dosage: 1 DF, QW2 (39 CYCLES)
     Route: 042
     Dates: start: 20140604, end: 20160705
  7. OXALIPLATIN. [Suspect]
     Active Substance: OXALIPLATIN
     Indication: COLORECTAL CANCER METASTATIC
     Dosage: 38 CYCLES
     Route: 042
     Dates: start: 20140618, end: 20160705
  8. FLOUROURACIL [Suspect]
     Active Substance: FLUOROURACIL
     Indication: COLORECTAL CANCER METASTATIC
     Dosage: 1 UNK, QW2 (38 CYCLES)
     Route: 042
     Dates: start: 20140618, end: 20160705
  9. FLOUROURACIL [Suspect]
     Active Substance: FLUOROURACIL
     Dosage: UNK UNK, BIW (38 CYCLES)
     Route: 042
     Dates: start: 20140618, end: 20160705
  10. AVASTIN [Suspect]
     Active Substance: BEVACIZUMAB
     Dosage: UNK, BIW (39 CYCLES)
     Route: 042
     Dates: start: 20140604, end: 20160705
  11. NOBIRETIC [Concomitant]
     Active Substance: HYDROCHLOROTHIAZIDE\NEBIVOLOL HYDROCHLORIDE
     Indication: PRODUCT USED FOR UNKNOWN INDICATION
     Dosage: UNK
     Route: 065
     Dates: start: 20151201
  12. OXALIPLATIN. [Suspect]
     Active Substance: OXALIPLATIN
     Dosage: UNK, BIW (38 CYCLES)
     Route: 042
     Dates: start: 20140618, end: 20160705
  13. FLOUROURACIL [Suspect]
     Active Substance: FLUOROURACIL
     Dosage: UNK UNK, QW2
     Route: 042
     Dates: start: 20160719
  14. FLOUROURACIL [Suspect]
     Active Substance: FLUOROURACIL
     Dosage: UNK UNK, BIW
     Route: 042
     Dates: start: 20160719
  15. INNOHEP [Concomitant]
     Active Substance: TINZAPARIN SODIUM
     Indication: PRODUCT USED FOR UNKNOWN INDICATION
     Dosage: UNK
     Route: 065
     Dates: start: 20160322, end: 20160913
  16. OXALIPLATIN. [Suspect]
     Active Substance: OXALIPLATIN
     Dosage: 1 DF, QW2 (38 CYCLES)
     Route: 042
     Dates: start: 20160705
  17. FOLINIC ACID [Suspect]
     Active Substance: LEUCOVORIN
     Dosage: 1 OT, QW2
     Route: 042
     Dates: start: 20160719
  18. FOLINIC ACID [Suspect]
     Active Substance: LEUCOVORIN
     Dosage: UNK, BIW
     Route: 042
     Dates: start: 20160719
  19. FOLINIC ACID [Suspect]
     Active Substance: LEUCOVORIN
     Dosage: UNK, BIW (38 CYCLES)
     Route: 042
     Dates: start: 20140618, end: 20160705

REACTIONS (9)
  - Stomatitis [Not Recovered/Not Resolved]
  - Dry mouth [Not Recovered/Not Resolved]
  - Nausea [Not Recovered/Not Resolved]
  - Pulmonary artery thrombosis [Not Recovered/Not Resolved]
  - Alopecia [Not Recovered/Not Resolved]
  - Hyperglycaemia [Not Recovered/Not Resolved]
  - Diarrhoea [Recovered/Resolved]
  - Off label use [Unknown]
  - Urticaria [Recovered/Resolved]

NARRATIVE: CASE EVENT DATE: 20160719
